FAERS Safety Report 25571622 (Version 1)
Quarter: 2025Q3

REPORT INFORMATION
  Report Type: Spontaneous
  Country: US (occurrence: None)
  Receive Date: 20250717
  Receipt Date: 20250717
  Transmission Date: 20251021
  Serious: Yes (Death)
  Sender: FDA-CTU
  Company Number: None

PATIENT
  Age: 86 Year
  Sex: Female
  Weight: 57.6 kg

DRUGS (16)
  1. FLUOROURACIL [Suspect]
     Active Substance: FLUOROURACIL
  2. IRINOTECAN SUCROSOFATE [Suspect]
     Active Substance: IRINOTECAN SUCROSOFATE
  3. LEUCOVORIN CALCIUM [Suspect]
     Active Substance: LEUCOVORIN CALCIUM
  4. LANTUS [Concomitant]
     Active Substance: INSULIN GLARGINE
  5. Norco 5~325 [Concomitant]
  6. AMLODIPINE [Concomitant]
     Active Substance: AMLODIPINE BESYLATE
  7. CHOLECALCIFEROL [Concomitant]
     Active Substance: CHOLECALCIFEROL
  8. COMPAZINE [Concomitant]
     Active Substance: PROCHLORPERAZINE MALEATE
  9. DECADRON [Concomitant]
     Active Substance: DEXAMETHASONE
  10. LOMOTIL [Concomitant]
     Active Substance: ATROPINE SULFATE\DIPHENOXYLATE HYDROCHLORIDE
  11. LOPERAMIDE [Concomitant]
     Active Substance: LOPERAMIDE
  12. LOSARTAN [Concomitant]
     Active Substance: LOSARTAN
  13. VITAMINS [Concomitant]
     Active Substance: VITAMINS
  14. NEXIUM [Concomitant]
     Active Substance: ESOMEPRAZOLE MAGNESIUM
  15. SIMVASTATIN [Concomitant]
     Active Substance: SIMVASTATIN
  16. ZOFRAN [Concomitant]
     Active Substance: ONDANSETRON HYDROCHLORIDE

REACTIONS (22)
  - Diarrhoea [None]
  - Nausea [None]
  - Dehydration [None]
  - Anaemia [None]
  - Platelet count decreased [None]
  - Dysarthria [None]
  - Gait inability [None]
  - Speech disorder [None]
  - Fluid intake reduced [None]
  - Hypophagia [None]
  - Anal incontinence [None]
  - Urinary incontinence [None]
  - Hospice care [None]
  - Somnolence [None]
  - Back pain [None]
  - Fatigue [None]
  - Decreased appetite [None]
  - Asthenia [None]
  - Depressed level of consciousness [None]
  - Hypersomnia [None]
  - Lethargy [None]
  - Somnolence [None]

NARRATIVE: CASE EVENT DATE: 20221018
